FAERS Safety Report 13259518 (Version 1)
Quarter: 2017Q1

REPORT INFORMATION
  Report Type: Report from Study
  Country: CO (occurrence: CO)
  Receive Date: 20170222
  Receipt Date: 20170222
  Transmission Date: 20170428
  Serious: Yes (Death)
  Sender: FDA-Public Use
  Company Number: CO-INCYTE CORPORATION-2017IN001274

PATIENT
  Age: 68 Year
  Sex: Male

DRUGS (1)
  1. JAKAVI [Suspect]
     Active Substance: RUXOLITINIB
     Indication: PRIMARY MYELOFIBROSIS
     Dosage: 5 MG, BID
     Route: 048
     Dates: start: 20170123

REACTIONS (2)
  - Primary myelofibrosis [Fatal]
  - Recurrent cancer [Fatal]

NARRATIVE: CASE EVENT DATE: 20170213
